FAERS Safety Report 17441311 (Version 1)
Quarter: 2020Q1

REPORT INFORMATION
  Report Type: Spontaneous
  Country: US (occurrence: US)
  Receive Date: 20200220
  Receipt Date: 20200220
  Transmission Date: 20200409
  Serious: Yes (Other)
  Sender: FDA-Public Use
  Company Number: US-CELGENEUS-USA-20200204769

PATIENT
  Sex: Female

DRUGS (4)
  1. OTEZLA [Suspect]
     Active Substance: APREMILAST
     Indication: PSORIASIS
     Dosage: 60 MILLIGRAM
     Route: 048
     Dates: start: 20200101
  2. INVOKANA [Concomitant]
     Active Substance: CANAGLIFLOZIN
     Indication: HYPERGLYCAEMIA
     Dosage: 100 MILLIGRAM
     Route: 065
     Dates: start: 2015
  3. BYSTOLIC [Concomitant]
     Active Substance: NEBIVOLOL HYDROCHLORIDE
     Indication: HYPERGLYCAEMIA
     Route: 065
  4. CRESTOR [Concomitant]
     Active Substance: ROSUVASTATIN CALCIUM
     Indication: HYPERGLYCAEMIA
     Route: 065
     Dates: start: 2016

REACTIONS (1)
  - Blood glucose increased [Unknown]
